FAERS Safety Report 7408324-0 (Version None)
Quarter: 2011Q2

REPORT INFORMATION
  Report Type: 
  Country: None (occurrence: None)
  Receive Date: 20110408
  Receipt Date: 20110408
  Transmission Date: 20111010
  Serious: Yes (Other)
  Sender: FDA-Public Use
  Company Number: None

PATIENT
  Age: 68 Year
  Sex: Female
  Weight: 80.7403 kg

DRUGS (1)
  1. SULFAMETHOXAZOLE AND TRIMETHOPRIM [Suspect]
     Indication: INFECTION
     Dosage: 2 PILLS PER DAY PO
     Route: 048
     Dates: start: 20110326, end: 20110402

REACTIONS (6)
  - MALAISE [None]
  - SLEEP DISORDER [None]
  - STRABISMUS [None]
  - HEADACHE [None]
  - NERVOUSNESS [None]
  - NAUSEA [None]
